FAERS Safety Report 10221483 (Version 2)
Quarter: 2014Q2

REPORT INFORMATION
  Report Type: Report from Study
  Country: AU (occurrence: AU)
  Receive Date: 20140606
  Receipt Date: 20140606
  Transmission Date: 20141212
  Serious: Yes (Other)
  Sender: FDA-Public Use
  Company Number: AU-009507513-2011SP025948

PATIENT
  Age: 46 Year
  Sex: Male
  Weight: 79.6 kg

DRUGS (5)
  1. TEMOZOLOMIDE [Suspect]
     Indication: MALIGNANT OLIGODENDROGLIOMA
     Dosage: 160 MG, UNKNOWN
     Route: 065
     Dates: start: 20101223, end: 20110209
  2. TEMOZOLOMIDE [Suspect]
     Dosage: 430 MG, UNKNOWN
     Route: 065
     Dates: end: 20110514
  3. LEVETIRACETAM [Concomitant]
     Indication: PRODUCT USED FOR UNKNOWN INDICATION
     Dosage: INDICATION: FITTING UPDATE(30JUN2011):CURATIVE THERAPY OF FITTING; UPDATE (12JUL2011): 2 IN 1 DAYS
     Route: 048
     Dates: start: 20101129
  4. GRANISETRON [Concomitant]
     Indication: NAUSEA
     Dosage: UPDATE (12JUL2011): 1IN 1 AS NECESSARY
     Route: 048
     Dates: start: 20101223
  5. DEXAMETHASONE [Concomitant]
     Indication: BRAIN OEDEMA
     Dosage: UPDATE (26JUL2011)
     Route: 048
     Dates: start: 20101127, end: 20110227

REACTIONS (2)
  - Cold agglutinins [Recovered/Resolved]
  - Thrombocytopenia [Recovered/Resolved]
